FAERS Safety Report 7707085-5 (Version None)
Quarter: 2011Q3

REPORT INFORMATION
  Report Type: 
  Country: None (occurrence: None)
  Receive Date: 20110819
  Receipt Date: 20110809
  Transmission Date: 20111222
  Serious: Yes (Disabling)
  Sender: FDA-Public Use
  Company Number: TUK2011A00114

PATIENT
  Age: 75 Year
  Sex: Male

DRUGS (9)
  1. DULOXETINE HYDROCHLORIDE [Suspect]
     Indication: PRODUCT USED FOR UNKNOWN INDICATION
     Dosage: 120 MG (60 M, 2 IN 1 D) ORAL
     Route: 048
     Dates: start: 20110720
  2. METFORMIN HCL [Concomitant]
  3. PERINDOPRIL ERBUMINE [Concomitant]
  4. QUININE SULFATE [Concomitant]
  5. GLICLAZIDE (GLICLAZIDE) [Concomitant]
  6. LEVOTHYROXINE SODIUM [Concomitant]
  7. ACTOS [Suspect]
     Indication: DIABETES MELLITUS
     Dosage: 45 MG (45 MG, 1-2, 1 IN 1 D), ORAL
     Route: 048
     Dates: start: 20100601
  8. METHOCARBAMOL [Suspect]
     Indication: MUSCLE SPASMS
     Dosage: 2250 MG (750 MG, 3 IN 1 D), ORAL
     Route: 048
     Dates: start: 20110727
  9. SIMVASTATIN [Concomitant]

REACTIONS (1)
  - BEDRIDDEN [None]
